FAERS Safety Report 11896769 (Version 4)
Quarter: 2016Q2

REPORT INFORMATION
  Report Type: Report from Study
  Country: US (occurrence: US)
  Receive Date: 20160107
  Receipt Date: 20160412
  Transmission Date: 20160815
  Serious: Yes (Death, Hospitalization)
  Sender: FDA-Public Use
  Company Number: US-ACTELION-A-US2015-129396

PATIENT
  Age: 82 Year
  Sex: Female

DRUGS (2)
  1. ADCIRCA [Concomitant]
     Active Substance: TADALAFIL
  2. MACITENTAN [Suspect]
     Active Substance: MACITENTAN
     Indication: PULMONARY ARTERIAL HYPERTENSION
     Dosage: 10 MG, QD
     Route: 048

REACTIONS (8)
  - Diabetes mellitus [Unknown]
  - Renal disorder [Unknown]
  - Blood pressure abnormal [Recovering/Resolving]
  - Renal failure [Fatal]
  - Dyspnoea [Unknown]
  - Cellulitis [Unknown]
  - Fluid retention [Unknown]
  - Weight increased [Unknown]
